FAERS Safety Report 25492770 (Version 4)
Quarter: 2025Q3

REPORT INFORMATION
  Report Type: Report from Study
  Country: CO (occurrence: CO)
  Receive Date: 20250630
  Receipt Date: 20250807
  Transmission Date: 20251021
  Serious: Yes (Hospitalization, Other)
  Sender: AMGEN
  Company Number: CO-AMGEN-COLSL2025114621

PATIENT
  Age: 39 Year
  Sex: Female

DRUGS (1)
  1. VECTIBIX [Suspect]
     Active Substance: PANITUMUMAB
     Indication: Colorectal cancer metastatic
     Dosage: UNK, Q2WK
     Route: 040
     Dates: start: 20250519, end: 20250519

REACTIONS (13)
  - Rectal haemorrhage [Not Recovered/Not Resolved]
  - Decreased immune responsiveness [Not Recovered/Not Resolved]
  - Abdominal pain [Not Recovered/Not Resolved]
  - Back pain [Not Recovered/Not Resolved]
  - Glycosuria [Not Recovered/Not Resolved]
  - Metastases to spleen [Not Recovered/Not Resolved]
  - Asthenia [Not Recovered/Not Resolved]
  - Discomfort [Not Recovered/Not Resolved]
  - Disease progression [Not Recovered/Not Resolved]
  - Rash [Not Recovered/Not Resolved]
  - Pyrexia [Not Recovered/Not Resolved]
  - Diarrhoea [Not Recovered/Not Resolved]
  - Skin burning sensation [Not Recovered/Not Resolved]

NARRATIVE: CASE EVENT DATE: 20250101
